FAERS Safety Report 7429781-X (Version None)
Quarter: 2011Q2

REPORT INFORMATION
  Report Type: 
  Country: None (occurrence: None)
  Receive Date: 20110421
  Receipt Date: 20110411
  Transmission Date: 20111010
  Serious: Yes (Hospitalization, Other)
  Sender: FDA-Public Use
  Company Number: US-MERCK-1010USA01165

PATIENT
  Age: 76 Year
  Sex: Female
  Weight: 73 kg

DRUGS (3)
  1. FOSAMAX [Suspect]
     Indication: OSTEOPOROSIS
     Route: 048
     Dates: start: 20031125, end: 20100801
  2. ONE-A-DAY ESSENTIAL VITAMINS [Concomitant]
     Route: 065
     Dates: start: 20050101
  3. ALENDRONATE SODIUM [Suspect]
     Route: 065
     Dates: start: 20080201, end: 20100101

REACTIONS (14)
  - ATROPHY [None]
  - HEAD INJURY [None]
  - DYSLIPIDAEMIA [None]
  - IMPAIRED HEALING [None]
  - PAIN IN EXTREMITY [None]
  - DEVICE BREAKAGE [None]
  - MUSCULAR WEAKNESS [None]
  - DYSPNOEA [None]
  - FALL [None]
  - FEMUR FRACTURE [None]
  - CARDIAC FAILURE CONGESTIVE [None]
  - PERIPHERAL VASCULAR DISORDER [None]
  - FRACTURE NONUNION [None]
  - LOW TURNOVER OSTEOPATHY [None]
